FAERS Safety Report 9205210 (Version 1)
Quarter: 2013Q2

REPORT INFORMATION
  Report Type: Spontaneous
  Country: US (occurrence: US)
  Receive Date: 20130402
  Receipt Date: 20130402
  Transmission Date: 20140414
  Serious: Yes (Hospitalization)
  Sender: FDA-Public Use
  Company Number: US-LUNDBECK-DKLU1089838

PATIENT
  Age: 9 Year
  Sex: Female

DRUGS (7)
  1. ONFI [Suspect]
     Indication: LENNOX-GASTAUT SYNDROME
     Route: 048
     Dates: start: 201209
  2. ONFI [Suspect]
     Route: 048
     Dates: start: 201209
  3. ONFI [Suspect]
     Route: 048
  4. KEPPRA [Concomitant]
     Indication: CONVULSION
  5. LAMICTAL [Concomitant]
     Indication: CONVULSION
  6. CLONAZEPAM [Concomitant]
     Indication: CONVULSION
  7. MIRALAX [Concomitant]
     Indication: CONSTIPATION

REACTIONS (1)
  - Ileus paralytic [Not Recovered/Not Resolved]
